FAERS Safety Report 7473155-2 (Version None)
Quarter: 2011Q2

REPORT INFORMATION
  Report Type: 
  Country: None (occurrence: None)
  Receive Date: 20110511
  Receipt Date: 20110503
  Transmission Date: 20111010
  Serious: Yes (Hospitalization)
  Sender: FDA-Public Use
  Company Number: A0763064A

PATIENT
  Age: 48 Year
  Sex: Male
  Weight: 95 kg

DRUGS (17)
  1. PRILOSEC [Concomitant]
  2. ROSIGLITAZONE MALEATE [Suspect]
     Dosage: 4MG TWICE PER DAY
     Route: 048
     Dates: start: 20061006, end: 20071209
  3. IMDUR [Concomitant]
  4. SIMVASTATIN [Concomitant]
  5. METFORMIN HCL [Concomitant]
  6. ISOSORBIDE DINITRATE [Concomitant]
  7. ATIVAN [Concomitant]
  8. DARVOCET-N 50 [Concomitant]
  9. DIOVAN [Concomitant]
  10. GLUCOPHAGE [Concomitant]
  11. LEXAPRO [Concomitant]
  12. METOPROLOL SUCCINATE [Concomitant]
  13. VITAMINS [Concomitant]
  14. LOPRESSOR [Concomitant]
  15. ZOCOR [Concomitant]
  16. PLAVIX [Concomitant]
  17. ASPIRIN [Concomitant]

REACTIONS (8)
  - MYOCARDIAL ISCHAEMIA [None]
  - CARDIAC DISORDER [None]
  - ANXIETY [None]
  - FATIGUE [None]
  - ANGINA UNSTABLE [None]
  - DEPRESSION [None]
  - MYOCARDIAL INFARCTION [None]
  - PAIN [None]
